FAERS Safety Report 9389300 (Version 1)
Quarter: 2013Q3

REPORT INFORMATION
  Report Type: Spontaneous
  Country: US (occurrence: US)
  Receive Date: 20130708
  Receipt Date: 20130708
  Transmission Date: 20140515
  Serious: No
  Sender: FDA-Public Use
  Company Number: US-AMGEN-USASP2013041115

PATIENT
  Age: 71 Year
  Sex: Female

DRUGS (4)
  1. ENBREL [Suspect]
     Indication: RHEUMATOID ARTHRITIS
     Dosage: UNK
     Route: 065
     Dates: start: 201211
  2. HUMIRA [Concomitant]
     Dosage: UNK
     Dates: start: 201211
  3. ORENCIA [Concomitant]
     Dosage: UNK
     Dates: start: 201211
  4. ACTEMRA [Concomitant]
     Dosage: UNK
     Dates: start: 201211

REACTIONS (3)
  - Pain [Unknown]
  - Gait disturbance [Unknown]
  - Rheumatoid arthritis [Unknown]
